FAERS Safety Report 7342086-0 (Version None)
Quarter: 2011Q1

REPORT INFORMATION
  Report Type: 
  Country: None (occurrence: None)
  Receive Date: 20110309
  Receipt Date: 20110228
  Transmission Date: 20110831
  Serious: Yes (Hospitalization)
  Sender: FDA-Public Use
  Company Number: DE-ASTRAZENECA-2011SE11864

PATIENT
  Age: 51 Year
  Sex: Female

DRUGS (12)
  1. LITHIUM DURILES [Suspect]
     Dosage: 250 - 2000 MG GRADUALLY INCREASED
     Route: 048
     Dates: start: 20100615, end: 20100723
  2. LITHIUM DURILES [Suspect]
     Route: 048
     Dates: start: 20100724, end: 20100829
  3. LITHIUM DURILES [Suspect]
     Route: 048
     Dates: start: 20100830, end: 20100905
  4. ZOLOFT [Concomitant]
     Route: 048
     Dates: start: 20100726, end: 20100827
  5. SEROQUEL [Suspect]
     Route: 048
     Dates: start: 20100716, end: 20100819
  6. LITHIUM DURILES [Suspect]
     Route: 048
     Dates: start: 20100906
  7. ZOLOFT [Concomitant]
     Route: 048
     Dates: start: 20090101, end: 20100725
  8. ZOLOFT [Concomitant]
     Route: 048
     Dates: start: 20100828
  9. SEROQUEL [Suspect]
     Dosage: 25 MG AS NEEDED, EVERY SECOND DAY
     Route: 048
     Dates: start: 20100612, end: 20100715
  10. SEROQUEL [Suspect]
     Route: 048
     Dates: start: 20100820, end: 20100823
  11. LEVOTHYROXINE SODIUM [Concomitant]
     Dosage: 75-100 UG DAILY
     Route: 048
  12. LAMOTRIGINE [Concomitant]
     Route: 048
     Dates: start: 20080101

REACTIONS (1)
  - CEREBRAL INFARCTION [None]
